FAERS Safety Report 24034641 (Version 2)
Quarter: 2024Q3

REPORT INFORMATION
  Report Type: Spontaneous
  Country: JP (occurrence: JP)
  Receive Date: 20240701
  Receipt Date: 20240710
  Transmission Date: 20241016
  Serious: No
  Sender: ROCHE
  Company Number: JP-CHUGAI-2024013806

PATIENT
  Age: 6 Year
  Sex: Female

DRUGS (1)
  1. EVRYSDI [Suspect]
     Active Substance: RISDIPLAM
     Indication: Spinal muscular atrophy
     Dosage: ROUTE: GASTRIC FISTULA
     Route: 065

REACTIONS (2)
  - Constipation [Recovering/Resolving]
  - Diarrhoea [Recovering/Resolving]
